FAERS Safety Report 9618186 (Version 6)
Quarter: 2014Q1

REPORT INFORMATION
  Report Type: Report from Study
  Country: BE (occurrence: BE)
  Receive Date: 20131014
  Receipt Date: 20140213
  Transmission Date: 20141002
  Serious: Yes (Hospitalization, Other)
  Sender: FDA-Public Use
  Company Number: BE-BIOGENIDEC-2013BI097985

PATIENT
  Age: 53 Year
  Sex: Female

DRUGS (1)
  1. TYSABRI [Suspect]
     Dates: start: 20101115

REACTIONS (2)
  - Upper limb fracture [Not Recovered/Not Resolved]
  - Fall [Recovered/Resolved with Sequelae]
